FAERS Safety Report 7585518-5 (Version None)
Quarter: 2011Q2

REPORT INFORMATION
  Report Type: 
  Country: None (occurrence: None)
  Receive Date: 20110624
  Receipt Date: 20110617
  Transmission Date: 20111010
  Serious: Yes (Disabling)
  Sender: FDA-Public Use
  Company Number: ACO_25280_2011

PATIENT
  Age: 47 Year
  Sex: Female

DRUGS (2)
  1. COPAXONE [Concomitant]
  2. AMPYRA [Suspect]
     Indication: GAIT DISTURBANCE
     Dosage: 10 MG, BID, ORAL
     Route: 048
     Dates: start: 20110525, end: 20110525

REACTIONS (2)
  - DYSSTASIA [None]
  - DIZZINESS [None]
